FAERS Safety Report 4334310-3 (Version None)
Quarter: 2004Q1

REPORT INFORMATION
  Report Type: 
  Country: None (occurrence: None)
  Receive Date: 20040305
  Receipt Date: 20040211
  Transmission Date: 20041129
  Serious: Yes (Other)
  Sender: FDA-Public Use
  Company Number: A0497660B

PATIENT
  Age: 6 Month
  Weight: 0.499 kg

DRUGS (1)
  1. NICODERM CQ [Suspect]
     Indication: EX-SMOKER
     Dosage: 21 MG / SINGLE DOSE / TRANSPLACENTA
     Route: 064
     Dates: start: 19990101, end: 19990101

REACTIONS (4)
  - CAESAREAN SECTION [None]
  - MATERNAL DRUGS AFFECTING FOETUS [None]
  - PREMATURE BABY [None]
  - SMALL FOR DATES BABY [None]
